FAERS Safety Report 8434455-2 (Version None)
Quarter: 2012Q2

REPORT INFORMATION
  Report Type: 
  Country: None (occurrence: None)
  Receive Date: 20120614
  Receipt Date: 20120531
  Transmission Date: 20120825
  Serious: Yes (Other)
  Sender: FDA-Public Use
  Company Number: BR-AMGEN-BRASP2012035272

PATIENT
  Age: 64 Year
  Sex: Female
  Weight: 60 kg

DRUGS (5)
  1. FOLIC ACID [Concomitant]
     Dosage: 20 MG, 1X/DAY
  2. CORTICORTEN [Concomitant]
     Dosage: 5 MG, 1X/DAY
  3. ENBREL [Suspect]
     Indication: RHEUMATOID ARTHRITIS
     Dosage: UNK
     Route: 058
     Dates: start: 20110201, end: 20120101
  4. ARAVA [Concomitant]
     Dosage: 50 MG, 1X/DAY
  5. METOPROLOL SUCCINATE [Concomitant]
     Dosage: 25 MG, 1X/DAY

REACTIONS (4)
  - ARTHROPATHY [None]
  - ARTHRALGIA [None]
  - DRUG INEFFECTIVE [None]
  - WEIGHT INCREASED [None]
